FAERS Safety Report 24383132 (Version 1)
Quarter: 2024Q4

REPORT INFORMATION
  Report Type: Spontaneous
  Country: RU (occurrence: RU)
  Receive Date: 20241001
  Receipt Date: 20241001
  Transmission Date: 20250115
  Serious: Yes (Hospitalization, Other)
  Sender: OXFORD PHARMACEUTICALS
  Company Number: RU-Oxford Pharmaceuticals, LLC-2162255

PATIENT
  Age: 24 Year
  Sex: Male

DRUGS (2)
  1. BACLOFEN [Suspect]
     Active Substance: BACLOFEN
     Indication: Product used for unknown indication
  2. PHENAZEPAM [Suspect]
     Active Substance: PHENAZEPAM

REACTIONS (2)
  - Depressed level of consciousness [Unknown]
  - Coordination abnormal [Unknown]
